FAERS Safety Report 19369857 (Version 4)
Quarter: 2021Q2

REPORT INFORMATION
  Report Type: Spontaneous
  Country: PT (occurrence: PT)
  Receive Date: 20210604
  Receipt Date: 20210618
  Transmission Date: 20210717
  Serious: Yes (Other)
  Sender: FDA-Public Use
  Company Number: PT-AUROBINDO-AUR-APL-2021-022243

PATIENT
  Age: 56 Year
  Sex: Female

DRUGS (1)
  1. PARACETAMOL [Suspect]
     Active Substance: ACETAMINOPHEN
     Indication: PRODUCT USED FOR UNKNOWN INDICATION
     Dosage: UNK, (CAUSED GBFDE)
     Route: 065

REACTIONS (11)
  - Generalised bullous fixed drug eruption [Recovered/Resolved]
  - Skin plaque [Recovered/Resolved]
  - Skin erosion [Recovered/Resolved]
  - Skin lesion [Recovered/Resolved]
  - Skin hyperpigmentation [Recovered/Resolved]
  - Post inflammatory pigmentation change [Unknown]
  - Rash erythematous [Recovered/Resolved]
  - Blister [Recovered/Resolved]
  - Rash [Recovered/Resolved]
  - Lymphocytic infiltration [Recovered/Resolved]
  - Skin reaction [Recovered/Resolved]
